FAERS Safety Report 6017412-5 (Version None)
Quarter: 2008Q4

REPORT INFORMATION
  Report Type: 
  Country: None (occurrence: None)
  Receive Date: 20081223
  Receipt Date: 20081217
  Transmission Date: 20090506
  Serious: Yes (Death, Hospitalization, Other)
  Sender: FDA-Public Use
  Company Number: PHEH2008US10704

PATIENT
  Sex: Female
  Weight: 98 kg

DRUGS (10)
  1. GLEEVEC [Suspect]
     Indication: ACUTE MYELOID LEUKAEMIA
     Dosage: 600 MG, QD
     Route: 048
     Dates: start: 20060101, end: 20070716
  2. EXJADE [Suspect]
     Indication: IRON OVERLOAD
     Dosage: 1500 MG, QD
     Route: 048
     Dates: start: 20070119, end: 20070520
  3. EXJADE [Suspect]
     Dosage: 2000 MG, QD
     Route: 048
     Dates: start: 20070521, end: 20070716
  4. CELLCEPT [Concomitant]
     Indication: ACUTE MYELOID LEUKAEMIA
     Dosage: 1 G, BID
     Dates: start: 20060824
  5. PROTONIX [Concomitant]
     Dosage: 40 MG, QD
     Route: 049
     Dates: start: 20060907
  6. DIFLUCAN [Concomitant]
     Dosage: 100 MG, QD
     Route: 048
     Dates: start: 20070104
  7. DAPSONE [Concomitant]
     Dosage: 100 MG, QD
     Route: 048
     Dates: start: 20060918
  8. ARANESP [Concomitant]
     Indication: ACUTE MYELOID LEUKAEMIA
     Dosage: 300 MCG SQ
     Route: 058
     Dates: start: 20070111
  9. VALTREX [Concomitant]
     Dosage: 500 MG, TID
     Route: 048
     Dates: start: 20070118
  10. AUGMENTIN                               /SCH/ [Concomitant]
     Indication: UPPER RESPIRATORY TRACT INFECTION
     Dosage: UNK
     Route: 048
     Dates: start: 20070701

REACTIONS (13)
  - ACUTE MYELOID LEUKAEMIA [None]
  - ACUTE RESPIRATORY FAILURE [None]
  - BONE MARROW TRANSPLANT [None]
  - COMPUTERISED TOMOGRAM ABNORMAL [None]
  - DYSPNOEA [None]
  - GRAFT VERSUS HOST DISEASE [None]
  - LUNG INFILTRATION [None]
  - MULTI-ORGAN FAILURE [None]
  - PULMONARY ALVEOLAR HAEMORRHAGE [None]
  - PULMONARY EMBOLISM [None]
  - RENAL FAILURE [None]
  - SEPSIS [None]
  - UPPER RESPIRATORY TRACT INFECTION [None]
